FAERS Safety Report 19258945 (Version 4)
Quarter: 2023Q1

REPORT INFORMATION
  Report Type: Report from Study
  Country: CA (occurrence: CA)
  Receive Date: 20210514
  Receipt Date: 20230310
  Transmission Date: 20230417
  Serious: Yes (Death, Hospitalization, Other)
  Sender: FDA-Public Use
  Company Number: CA-KARYOPHARM-2021KPT000634

PATIENT
  Age: 59 Year
  Sex: Male

DRUGS (4)
  1. SELINEXOR [Suspect]
     Active Substance: SELINEXOR
     Indication: Plasma cell myeloma
     Dosage: 80 MG, WEEKLY
     Route: 048
     Dates: start: 20210210, end: 20210412
  2. CARFILZOMIB [Concomitant]
     Active Substance: CARFILZOMIB
     Indication: Plasma cell myeloma
     Dosage: 20 MG/M2, SINGLE
     Dates: start: 20210210, end: 20210210
  3. CARFILZOMIB [Concomitant]
     Active Substance: CARFILZOMIB
     Dosage: 56 MG/M2, WEEKLY
     Dates: start: 2021
  4. DEXAMETHASONE [Concomitant]
     Active Substance: DEXAMETHASONE
     Indication: Plasma cell myeloma
     Dosage: 40 MG, WEEKLY
     Route: 048
     Dates: start: 20210210

REACTIONS (3)
  - Plasma cell myeloma [Fatal]
  - Catheter site haemorrhage [Recovered/Resolved]
  - Device related bacteraemia [Not Recovered/Not Resolved]

NARRATIVE: CASE EVENT DATE: 20210101
